FAERS Safety Report 6782061-8 (Version None)
Quarter: 2010Q2

REPORT INFORMATION
  Report Type: 
  Country: None (occurrence: None)
  Receive Date: 20100621
  Receipt Date: 20100617
  Transmission Date: 20101027
  Serious: Yes (Hospitalization)
  Sender: FDA-Public Use
  Company Number: B0657761A

PATIENT
  Sex: Female

DRUGS (21)
  1. AUGMENTIN '125' [Suspect]
     Indication: PROPHYLAXIS
     Dosage: 3G PER DAY
     Route: 042
     Dates: start: 20100426, end: 20100426
  2. ULTIVA [Suspect]
     Dosage: .89MG PER DAY
     Route: 042
     Dates: start: 20100426, end: 20100426
  3. ATRACURIUM [Suspect]
     Dosage: 120MG PER DAY
     Route: 042
     Dates: start: 20100426, end: 20100426
  4. PROPOFOL [Suspect]
     Dosage: 500MG PER DAY
     Route: 042
     Dates: start: 20100426, end: 20100426
  5. NORMACOL [Suspect]
     Indication: PREMEDICATION
     Route: 054
     Dates: start: 20100425, end: 20100425
  6. BETADINE [Suspect]
     Indication: PREOPERATIVE CARE
     Route: 061
     Dates: start: 20100425, end: 20100426
  7. BETADINE [Suspect]
     Route: 067
     Dates: start: 20100426, end: 20100426
  8. NEURONTIN [Suspect]
     Indication: PREMEDICATION
     Route: 065
     Dates: start: 20100425, end: 20100426
  9. KETAMINE [Suspect]
     Route: 042
     Dates: start: 20100426, end: 20100426
  10. ACUPAN [Suspect]
     Route: 042
     Dates: start: 20100426, end: 20100427
  11. DEXAMETHASONE [Suspect]
     Dosage: 4MG PER DAY
     Route: 042
     Dates: start: 20100426, end: 20100426
  12. NAROPIN [Suspect]
     Dosage: 15MG PER DAY
     Route: 026
     Dates: start: 20100426, end: 20100426
  13. SPASFON [Suspect]
     Indication: DRUG USE FOR UNKNOWN INDICATION
     Route: 042
     Dates: start: 20100426, end: 20100428
  14. LEVOTHYROXINE SODIUM [Concomitant]
     Route: 065
     Dates: end: 20100401
  15. OROCAL [Concomitant]
     Route: 065
     Dates: end: 20100401
  16. IBUPROFEN TABLETS [Concomitant]
     Route: 065
     Dates: end: 20100401
  17. LOVENOX [Concomitant]
     Indication: PREMEDICATION
     Dosage: .4ML PER DAY
     Route: 065
     Dates: start: 20100425, end: 20100427
  18. DROPERIDOL [Concomitant]
     Route: 065
     Dates: start: 20100426
  19. PERFALGAN [Concomitant]
     Route: 065
     Dates: start: 20100426, end: 20100502
  20. RINGER'S [Concomitant]
     Route: 065
     Dates: start: 20100426
  21. PHYSIOLOGICAL SERUM [Concomitant]
     Route: 065
     Dates: start: 20100426

REACTIONS (5)
  - HAEMATURIA [None]
  - LYMPHOPENIA [None]
  - OLIGURIA [None]
  - PRODUCT QUALITY ISSUE [None]
  - RENAL FAILURE ACUTE [None]
